FAERS Safety Report 9822254 (Version 1)
Quarter: 2014Q1

REPORT INFORMATION
  Report Type: Report from Study
  Country: CA (occurrence: CA)
  Receive Date: 20140116
  Receipt Date: 20140116
  Transmission Date: 20141002
  Serious: Yes (Other)
  Sender: FDA-Public Use
  Company Number: CA-JNJFOC-20140104693

PATIENT
  Age: 65 Year
  Sex: Male
  Weight: 82 kg

DRUGS (11)
  1. REMICADE [Suspect]
     Indication: ANKYLOSING SPONDYLITIS
     Route: 042
     Dates: start: 2006
  2. TIAZAC [Concomitant]
     Route: 065
  3. JANUVIA [Concomitant]
     Route: 065
  4. DIAMICRON MR [Concomitant]
     Route: 065
  5. ALTACE [Concomitant]
     Route: 065
  6. SIMVASTATIIN [Concomitant]
     Indication: PRODUCT USED FOR UNKNOWN INDICATION
     Route: 065
  7. METHOTREXATE [Concomitant]
     Dosage: 5 TABLETS ONCE A WEEK
     Route: 065
  8. LIPIDIL [Concomitant]
     Route: 065
  9. PANTOPRAZOLE [Concomitant]
     Route: 065
  10. RATIO-METFORMIN [Concomitant]
     Dosage: THREE TABLETS ONCE A DAY
     Route: 065
  11. XARELTO [Concomitant]
     Indication: ANTICOAGULANT THERAPY
     Route: 065

REACTIONS (5)
  - Nephrolithiasis [Unknown]
  - Cholelithiasis [Unknown]
  - Haemorrhoids [Recovered/Resolved]
  - Decreased appetite [Recovered/Resolved]
  - Weight decreased [Recovered/Resolved]
